FAERS Safety Report 10095795 (Version 1)
Quarter: 2014Q2

REPORT INFORMATION
  Report Type: Spontaneous
  Country: US (occurrence: US)
  Receive Date: 20140422
  Receipt Date: 20140422
  Transmission Date: 20141212
  Serious: No
  Sender: FDA-Public Use
  Company Number: US-GILEAD-2013-0075189

PATIENT
  Age: 75 Year
  Sex: Female

DRUGS (3)
  1. LETAIRIS [Suspect]
     Indication: PRODUCT USED FOR UNKNOWN INDICATION
     Dosage: 5 MG, QD
     Route: 048
     Dates: start: 20120912
  2. ADCIRCA [Concomitant]
     Dosage: UNK
     Dates: start: 20130507
  3. COUMADINE [Concomitant]

REACTIONS (3)
  - Epistaxis [Unknown]
  - Insomnia [Unknown]
  - Nasal congestion [Unknown]
